FAERS Safety Report 6639507-5 (Version None)
Quarter: 2010Q1

REPORT INFORMATION
  Report Type: 
  Country: None (occurrence: None)
  Receive Date: 20100318
  Receipt Date: 20100303
  Transmission Date: 20100710
  Serious: Yes (Other)
  Sender: FDA-Public Use
  Company Number: US-ELI_LILLY_AND_COMPANY-US201003002033

PATIENT
  Age: 71 Year
  Sex: Male

DRUGS (3)
  1. EFFIENT [Suspect]
     Indication: CORONARY ARTERY OCCLUSION
     Dosage: UNK, UNK
     Route: 065
     Dates: start: 20100214
  2. EFFIENT [Suspect]
     Dosage: 10 MG, DAILY (1/D)
     Route: 065
     Dates: start: 20100215, end: 20100228
  3. ASPIRIN [Concomitant]

REACTIONS (1)
  - THROMBOTIC THROMBOCYTOPENIC PURPURA [None]
